FAERS Safety Report 6353539-6 (Version None)
Quarter: 2009Q3

REPORT INFORMATION
  Report Type: 
  Country: None (occurrence: None)
  Receive Date: 20090912
  Receipt Date: 20090622
  Transmission Date: 20100115
  Serious: No
  Sender: FDA-Public Use
  Company Number: US-ABBOTT-08P-163-0461710-00

PATIENT
  Sex: Female
  Weight: 50.848 kg

DRUGS (5)
  1. HUMIRA [Suspect]
     Indication: COLITIS ULCERATIVE
     Route: 050
     Dates: start: 20080708
  2. MESALAZINE [Concomitant]
     Indication: COLITIS ULCERATIVE
     Route: 048
  3. PROVELLA-14 [Concomitant]
     Indication: HORMONE REPLACEMENT THERAPY
     Route: 048
  4. FEXOFENADINE [Concomitant]
     Indication: HYPERAESTHESIA
     Route: 048
  5. INFLIXIMAB [Concomitant]
     Indication: UNEVALUABLE EVENT
     Route: 042

REACTIONS (3)
  - INCORRECT DOSE ADMINISTERED [None]
  - INJECTION SITE PAIN [None]
  - WRONG TECHNIQUE IN DRUG USAGE PROCESS [None]
